FAERS Safety Report 23366567 (Version 1)
Quarter: 2024Q1

REPORT INFORMATION
  Report Type: Spontaneous
  Country: IT (occurrence: IT)
  Receive Date: 20240104
  Receipt Date: 20240104
  Transmission Date: 20240410
  Serious: Yes (Hospitalization, Other)
  Sender: FDA-Public Use
  Company Number: None

PATIENT
  Age: 67 Year
  Sex: Male

DRUGS (2)
  1. SARCLISA [Suspect]
     Active Substance: ISATUXIMAB-IRFC
     Dosage: 10 MG/KG DAYS 1,8,15,22
     Route: 042
     Dates: start: 20220517, end: 20230301
  2. CARFILZOMIB [Concomitant]
     Active Substance: CARFILZOMIB
     Indication: Plasma cell myeloma refractory
     Dosage: DAYS 1,2,8,9,15,16
     Route: 042
     Dates: start: 20220517, end: 20230301

REACTIONS (3)
  - Acute respiratory failure [Recovering/Resolving]
  - Interstitial lung disease [Recovered/Resolved]
  - Hypogammaglobulinaemia [Recovering/Resolving]

NARRATIVE: CASE EVENT DATE: 20230306
